FAERS Safety Report 7564051-0 (Version None)
Quarter: 2011Q2

REPORT INFORMATION
  Report Type: 
  Country: None (occurrence: None)
  Receive Date: 20110622
  Receipt Date: 20110613
  Transmission Date: 20111010
  Serious: Yes (Hospitalization, Other)
  Sender: FDA-Public Use
  Company Number: US-ASTRAZENECA-2010SE55132

PATIENT
  Age: 33 Year
  Sex: Female

DRUGS (1)
  1. TOPROL-XL [Suspect]
     Route: 048

REACTIONS (5)
  - MYOCARDIAL INFARCTION [None]
  - MASTECTOMY [None]
  - MALAISE [None]
  - CHEMOTHERAPY [None]
  - HEPATITIS C [None]
